FAERS Safety Report 11650715 (Version 1)
Quarter: 2015Q4

REPORT INFORMATION
  Report Type: Spontaneous
  Country: CZ (occurrence: CZ)
  Receive Date: 20151021
  Receipt Date: 20151021
  Transmission Date: 20160304
  Serious: Yes (Death)
  Sender: FDA-Public Use
  Company Number: CZ-MYLANLABS-2015M1035487

PATIENT

DRUGS (2)
  1. FOLINIC ACID [Suspect]
     Active Substance: LEUCOVORIN
     Indication: GASTRIC CANCER
     Dosage: 20 MG/M2 ON DAY 1-5 EVERY 28 DAYS FOR 5 CYCLES
     Route: 065
  2. FLUOROURACIL. [Suspect]
     Active Substance: FLUOROURACIL
     Indication: GASTRIC CANCER
     Dosage: 425 MG/M2 ON DAY 1-5 EVERY 28 DAYS FOR 5 CYCLES
     Route: 065

REACTIONS (2)
  - Pulmonary embolism [Fatal]
  - Ileus paralytic [Fatal]
